FAERS Safety Report 6692097-3 (Version None)
Quarter: 2010Q2

REPORT INFORMATION
  Report Type: 
  Country: None (occurrence: None)
  Receive Date: 20100422
  Receipt Date: 20091203
  Transmission Date: 20101027
  Serious: No
  Sender: FDA-Public Use
  Company Number: US-ASTRAZENECA-2009SE30060

PATIENT
  Age: 52 Year
  Sex: Female
  Weight: 90.7 kg

DRUGS (4)
  1. TOPROL-XL [Suspect]
     Route: 048
     Dates: start: 20080101
  2. TOPROL-XL [Suspect]
     Route: 048
     Dates: start: 20091128
  3. STOMACH MEDICATION UNKNOWN [Concomitant]
  4. KLONOPIN [Concomitant]

REACTIONS (2)
  - FEELING COLD [None]
  - HYPOTENSION [None]
